FAERS Safety Report 14631495 (Version 2)
Quarter: 2018Q1

REPORT INFORMATION
  Report Type: Report from Study
  Country: NL (occurrence: NL)
  Receive Date: 20180313
  Receipt Date: 20180319
  Transmission Date: 20180509
  Serious: Yes (Hospitalization, Other)
  Sender: FDA-Public Use
  Company Number: NL-IPSEN BIOPHARMACEUTICALS, INC.-2018-03633

PATIENT
  Age: 77 Year
  Sex: Male

DRUGS (1)
  1. SOMATULINE AUTOSOLUTION 60MG [Suspect]
     Active Substance: LANREOTIDE ACETATE
     Indication: CARCINOID TUMOUR
     Dosage: 60 MG
     Route: 058
     Dates: start: 20150925

REACTIONS (5)
  - Cholecystectomy [Unknown]
  - Anastomotic leak [Unknown]
  - Malaise [Not Recovered/Not Resolved]
  - Pyrexia [Not Recovered/Not Resolved]
  - Post procedural sepsis [Unknown]

NARRATIVE: CASE EVENT DATE: 2018
